FAERS Safety Report 8464240-7 (Version None)
Quarter: 2012Q2

REPORT INFORMATION
  Report Type: 
  Country: None (occurrence: None)
  Receive Date: 20120625
  Receipt Date: 20120618
  Transmission Date: 20120825
  Serious: No
  Sender: FDA-Public Use
  Company Number: US-PFIZER INC-2012120861

PATIENT
  Sex: Female
  Weight: 77.098 kg

DRUGS (5)
  1. ZITHROMAX [Suspect]
     Dosage: 250 ON DAY 2-4
     Route: 048
     Dates: start: 20120508, end: 20120511
  2. CENTRUM [Concomitant]
     Dosage: UNK
     Dates: start: 20120501, end: 20120506
  3. ZITHROMAX [Suspect]
     Indication: PHARYNGITIS
     Dosage: 500 ON DAY 1
     Route: 048
     Dates: start: 20120507, end: 20120507
  4. ACETAMINOPHEN [Concomitant]
     Indication: PYREXIA
     Dosage: UNK
  5. FISH OIL [Concomitant]
     Dosage: UNK
     Dates: start: 20120501, end: 20120506

REACTIONS (4)
  - SENSORY LOSS [None]
  - HYPOSMIA [None]
  - HYPOGEUSIA [None]
  - AGEUSIA [None]
